FAERS Safety Report 12328046 (Version 3)
Quarter: 2016Q2

REPORT INFORMATION
  Report Type: Spontaneous
  Country: PR (occurrence: PR)
  Receive Date: 20160503
  Receipt Date: 20160613
  Transmission Date: 20160815
  Serious: Yes (Other)
  Sender: FDA-Public Use
  Company Number: PR-PFIZER INC-2016237153

PATIENT
  Age: 80 Year
  Sex: Female
  Weight: 50.79 kg

DRUGS (2)
  1. IBRANCE [Suspect]
     Active Substance: PALBOCICLIB
     Indication: BREAST CANCER FEMALE
     Dosage: 100 MG, DAILY
     Route: 048
     Dates: start: 20150307
  2. IBRANCE [Suspect]
     Active Substance: PALBOCICLIB
     Dosage: 100 MG, DAILY
     Route: 048
     Dates: start: 20160307

REACTIONS (6)
  - Arthralgia [Unknown]
  - Nausea [Unknown]
  - Vomiting [Unknown]
  - Tongue haemorrhage [Unknown]
  - Thrombocytopenia [Unknown]
  - Haemoglobin decreased [Unknown]
